FAERS Safety Report 4642572-8 (Version None)
Quarter: 2005Q2

REPORT INFORMATION
  Report Type: 
  Country: None (occurrence: None)
  Receive Date: 20050422
  Receipt Date: 20050414
  Transmission Date: 20051028
  Serious: Yes (Death)
  Sender: FDA-Public Use
  Company Number: US-MERCK-0504USA03108

PATIENT
  Sex: Female

DRUGS (2)
  1. VIOXX [Suspect]
     Route: 048
     Dates: start: 20020101, end: 20021230
  2. CELEBREX [Concomitant]
     Route: 065
     Dates: start: 20020101, end: 20021230

REACTIONS (3)
  - DEATH [None]
  - EMOTIONAL DISTRESS [None]
  - PAIN [None]
